FAERS Safety Report 9685112 (Version 1)
Quarter: 2013Q4

REPORT INFORMATION
  Report Type: Spontaneous
  Country: DE (occurrence: DE)
  Receive Date: 20131113
  Receipt Date: 20131113
  Transmission Date: 20140711
  Serious: Yes (Hospitalization)
  Sender: FDA-Public Use
  Company Number: DE-AMGEN-DEUSP2013079151

PATIENT
  Sex: Male

DRUGS (11)
  1. NEULASTA [Suspect]
     Indication: B-CELL LYMPHOMA
     Dosage: 6 MG, ONCE DAY 4 OF EACH CYCLE FOR 79 DAYS
     Route: 058
     Dates: start: 20130510, end: 20130727
  2. CYCLOPHOSPHAMIDE [Suspect]
     Indication: B-CELL LYMPHOMA
     Dosage: 1550 MG, ONCE FOR 79 DAYS
     Route: 042
     Dates: start: 20130507, end: 20130724
  3. RITUXIMAB [Suspect]
     Indication: B-CELL LYMPHOMA
     Dosage: 776 MG, ONCE
     Route: 042
     Dates: start: 20130506
  4. DOXORUBICIN [Suspect]
     Indication: B-CELL LYMPHOMA
     Dosage: 103 MG, ONCE FOR 79 DAYS
     Route: 042
     Dates: start: 20130507, end: 20130724
  5. VINCRISTINE [Suspect]
     Indication: B-CELL LYMPHOMA
     Dosage: 2.09 MG, ONCE FOR 79 DAYS
     Route: 042
     Dates: start: 20130507, end: 20130724
  6. PREDNISOLONE [Suspect]
     Indication: B-CELL LYMPHOMA
     Dosage: 100 MG, DAILY/ 5 DAYS FOR 84 DAYS
     Route: 048
     Dates: start: 20130507, end: 20130729
  7. CITALOPRAM [Concomitant]
     Indication: DEPRESSION
     Dosage: 20 MG, ONCE
     Route: 048
  8. TRIMETHOPRIM SULFAMETHOXAZOLE [Concomitant]
     Indication: PROPHYLAXIS
     Dosage: 1920 MG, TWICE WEEKLY
     Route: 048
     Dates: start: 20130506
  9. FOLIC ACID [Concomitant]
     Indication: PROPHYLAXIS
     Dosage: 5 MG, TWICE WEEKLY
     Route: 048
     Dates: start: 20130506
  10. ACICLOVIR [Concomitant]
     Indication: PROPHYLAXIS
     Dosage: 400 MG, 4 TIMES A DAY
     Route: 048
     Dates: start: 20130506
  11. ACETYLSALICYLIC ACID [Concomitant]
     Indication: PROPHYLAXIS
     Dosage: 100 MG, ONCE
     Route: 048

REACTIONS (1)
  - Pneumonia [Recovered/Resolved]
